FAERS Safety Report 6959946-2 (Version None)
Quarter: 2010Q3

REPORT INFORMATION
  Report Type: 
  Country: None (occurrence: None)
  Receive Date: 20100901
  Receipt Date: 20100819
  Transmission Date: 20110219
  Serious: Yes (Other)
  Sender: FDA-Public Use
  Company Number: PHHY2010US55216

PATIENT
  Sex: Female

DRUGS (8)
  1. RECLAST [Suspect]
     Dosage: UNK
     Dates: start: 20100208
  2. LISINOPRIL [Concomitant]
  3. FUROSEMIDE [Concomitant]
  4. EVISTA [Concomitant]
  5. MELOXICAM [Concomitant]
  6. CYCLOBENZAPRINE [Concomitant]
     Dosage: 5 MG
  7. CALCIUM [Concomitant]
  8. OMEPRAZOLE [Concomitant]

REACTIONS (3)
  - GINGIVAL ABSCESS [None]
  - GINGIVAL DISORDER [None]
  - GINGIVAL INFECTION [None]
